FAERS Safety Report 24453911 (Version 2)
Quarter: 2024Q4

REPORT INFORMATION
  Report Type: Report from Study
  Country: JP (occurrence: JP)
  Receive Date: 20241017
  Receipt Date: 20241018
  Transmission Date: 20250115
  Serious: No
  Sender: ROCHE
  Company Number: JP-ROCHE-3439180

PATIENT
  Age: 85 Year
  Sex: Male
  Weight: 49.0 kg

DRUGS (16)
  1. RITUXAN [Suspect]
     Active Substance: RITUXIMAB
     Indication: Acquired haemophilia
     Route: 041
     Dates: start: 20230719
  2. RITUXAN [Suspect]
     Active Substance: RITUXIMAB
     Route: 041
     Dates: start: 20231208, end: 20240117
  3. HEMLIBRA [Concomitant]
     Active Substance: EMICIZUMAB-KXWH
     Route: 058
     Dates: start: 20230622, end: 20230622
  4. HEMLIBRA [Concomitant]
     Active Substance: EMICIZUMAB-KXWH
     Route: 058
     Dates: start: 20230623, end: 20230623
  5. HEMLIBRA [Concomitant]
     Active Substance: EMICIZUMAB-KXWH
     Route: 058
     Dates: start: 20230629
  6. HEMLIBRA [Concomitant]
     Active Substance: EMICIZUMAB-KXWH
     Route: 058
     Dates: start: 20230830, end: 20230913
  7. HEMLIBRA [Concomitant]
     Active Substance: EMICIZUMAB-KXWH
     Route: 058
     Dates: start: 20231207, end: 20231207
  8. HEMLIBRA [Concomitant]
     Active Substance: EMICIZUMAB-KXWH
     Route: 058
     Dates: start: 20231208, end: 20231208
  9. HEMLIBRA [Concomitant]
     Active Substance: EMICIZUMAB-KXWH
     Route: 058
     Dates: start: 20231227, end: 20231227
  10. PREDNISOLONE [Concomitant]
     Active Substance: PREDNISOLONE
     Route: 048
     Dates: end: 20230712
  11. PREDNISOLONE [Concomitant]
     Active Substance: PREDNISOLONE
     Route: 048
     Dates: start: 20230713
  12. PREDNISOLONE [Concomitant]
     Active Substance: PREDNISOLONE
     Route: 048
     Dates: start: 20230830, end: 20230905
  13. PREDNISOLONE [Concomitant]
     Active Substance: PREDNISOLONE
     Route: 048
     Dates: start: 20230906, end: 20231206
  14. PREDNISOLONE [Concomitant]
     Active Substance: PREDNISOLONE
     Route: 048
     Dates: start: 20231207, end: 20240116
  15. PREDNISOLONE [Concomitant]
     Active Substance: PREDNISOLONE
     Route: 048
     Dates: start: 20240117, end: 20240213
  16. PREDNISOLONE [Concomitant]
     Active Substance: PREDNISOLONE
     Route: 048
     Dates: start: 20240214

REACTIONS (2)
  - Off label use [Unknown]
  - No adverse event [Unknown]
